FAERS Safety Report 13598064 (Version 1)
Quarter: 2017Q2

REPORT INFORMATION
  Report Type: Spontaneous
  Country: CO (occurrence: CO)
  Receive Date: 20170531
  Receipt Date: 20170531
  Transmission Date: 20170830
  Serious: Yes (Other)
  Sender: FDA-Public Use
  Company Number: CO-PFIZER INC-2017233674

PATIENT
  Sex: Male

DRUGS (1)
  1. ZITROMAX MD [Suspect]
     Active Substance: AZITHROMYCIN

REACTIONS (1)
  - Haematochezia [Unknown]
